FAERS Safety Report 15036420 (Version 1)
Quarter: 2018Q2

REPORT INFORMATION
  Report Type: Spontaneous
  Country: GB (occurrence: GB)
  Receive Date: 20180620
  Receipt Date: 20180620
  Transmission Date: 20180711
  Serious: Yes (Hospitalization)
  Sender: FDA-Public Use
  Company Number: PHHY2018GB022216

PATIENT
  Age: 35 Year
  Sex: Female
  Weight: 109 kg

DRUGS (1)
  1. SANDOSTATIN LAR DEPOT [Suspect]
     Active Substance: OCTREOTIDE ACETATE
     Indication: NEUROENDOCRINE TUMOUR
     Dosage: 30 MG, UNK (EVERY 21 DAYS)
     Route: 030
     Dates: start: 20170901

REACTIONS (3)
  - Inappropriate schedule of drug administration [Unknown]
  - Pain [Recovered/Resolved]
  - Skin discolouration [Recovered/Resolved with Sequelae]

NARRATIVE: CASE EVENT DATE: 20180601
